FAERS Safety Report 9060353 (Version 1)
Quarter: 2013Q1

REPORT INFORMATION
  Report Type: Spontaneous
  Country: US (occurrence: US)
  Receive Date: 20130212
  Receipt Date: 20130212
  Transmission Date: 20140127
  Serious: No
  Sender: FDA-Public Use
  Company Number: US-009507513-1302USA004982

PATIENT
  Sex: Male

DRUGS (1)
  1. DR. SCHOLL^S MASSAGING GEL HEEL CUSHIONS [Suspect]
     Indication: PAIN IN EXTREMITY

REACTIONS (1)
  - Therapeutic product ineffective [Unknown]
